FAERS Safety Report 9191741 (Version 1)
Quarter: 2013Q1

REPORT INFORMATION
  Report Type: Spontaneous
  Country: US (occurrence: US)
  Receive Date: 20130326
  Receipt Date: 20130326
  Transmission Date: 20140127
  Serious: No
  Sender: FDA-Public Use
  Company Number: US-009507513-1303USA012323

PATIENT
  Sex: Male

DRUGS (3)
  1. LOTRIMIN AF [Suspect]
     Indication: RASH
     Route: 061
  2. ISENTRESS [Concomitant]
     Indication: HIV INFECTION
     Dosage: 400 MG, BID
     Route: 048
     Dates: start: 200803
  3. TRUVADA [Concomitant]

REACTIONS (1)
  - Drug ineffective [Unknown]
